FAERS Safety Report 8590491-7 (Version None)
Quarter: 2012Q3

REPORT INFORMATION
  Report Type: 
  Country: None (occurrence: None)
  Receive Date: 20120813
  Receipt Date: 20120808
  Transmission Date: 20120928
  Serious: Yes (Other)
  Sender: FDA-Public Use
  Company Number: US-PFIZER INC-2012157040

PATIENT
  Age: 68 Year
  Sex: Female
  Weight: 50.794 kg

DRUGS (11)
  1. SYNTHROID [Concomitant]
     Indication: THYROID DISORDER
     Dosage: 0.150 MG, 1X/DAY
  2. OMNARIS [Concomitant]
     Dosage: 50 MCG/ACT
     Route: 045
     Dates: end: 20120308
  3. CLARITIN [Concomitant]
     Dosage: 10 MG
     Route: 048
  4. NASONEX [Concomitant]
     Dosage: 50 MCG/ACT, 2 SPRAYS IN EACH NOSTRIL DAILY FOR 3 WEEKS, STOP FOR 1 WEEK THEN RESTART
     Route: 045
  5. MEDROL [Suspect]
     Indication: LARYNGEAL INFLAMMATION
     Dosage: UNK
     Dates: start: 20120401
  6. MEDROL [Suspect]
     Indication: SINUSITIS
  7. MEDROL [Suspect]
     Indication: LARYNGITIS
  8. DIAZEPAM [Concomitant]
     Dosage: 5 MG, UNK
     Route: 048
  9. MEDROL [Suspect]
     Indication: PHARYNGEAL OEDEMA
     Dosage: DOSE PAK 4MG AS DIRECTED TO START ON DAY 3
     Route: 048
     Dates: start: 20120309, end: 20120314
  10. MEDROL [Suspect]
     Indication: NASAL CONGESTION
  11. ZITHROMAX [Concomitant]
     Dosage: 250 MG, UNK
     Route: 048

REACTIONS (12)
  - MALAISE [None]
  - LIPOATROPHY [None]
  - VOMITING [None]
  - INCORRECT DOSE ADMINISTERED [None]
  - DEPRESSED MOOD [None]
  - DIZZINESS [None]
  - WEIGHT DECREASED [None]
  - EYE INFLAMMATION [None]
  - ANGLE CLOSURE GLAUCOMA [None]
  - PALLOR [None]
  - DECREASED APPETITE [None]
  - ASTHENIA [None]
